FAERS Safety Report 6376495-3 (Version None)
Quarter: 2009Q3

REPORT INFORMATION
  Report Type: 
  Country: None (occurrence: None)
  Receive Date: 20090925
  Receipt Date: 20090914
  Transmission Date: 20100115
  Serious: Yes (Hospitalization)
  Sender: FDA-Public Use
  Company Number: ZA-RANBAXY-2009RR-28151

PATIENT
  Age: 9 Year
  Sex: Female

DRUGS (9)
  1. STAVUDINE [Suspect]
     Indication: HIV INFECTION
  2. LAMIVUDINE [Suspect]
     Indication: HIV INFECTION
  3. RITONAVIR [Suspect]
     Indication: HIV INFECTION
  4. LOPINAVIR [Suspect]
     Indication: HIV INFECTION
  5. FLUOXETINE [Suspect]
     Indication: DEPRESSION
     Dosage: 5 MG, QD
  6. ISONIAZID [Suspect]
  7. RIFAMPICIN [Concomitant]
  8. PYRAZINAMIDE [Concomitant]
  9. ETHIONAMIDE [Concomitant]

REACTIONS (14)
  - AGITATION [None]
  - CATATONIA [None]
  - DELIRIUM [None]
  - DELUSION [None]
  - DRUG INTERACTION [None]
  - EUPHORIC MOOD [None]
  - FEAR [None]
  - HALLUCINATION [None]
  - HYPERVIGILANCE [None]
  - MENTAL DISORDER [None]
  - SEROTONIN SYNDROME [None]
  - SOMNOLENCE [None]
  - TEARFULNESS [None]
  - THINKING ABNORMAL [None]
